FAERS Safety Report 8007440-2 (Version None)
Quarter: 2011Q4

REPORT INFORMATION
  Report Type: 
  Country: None (occurrence: None)
  Receive Date: 20111227
  Receipt Date: 20111221
  Transmission Date: 20120403
  Serious: Yes (Other)
  Sender: FDA-Public Use
  Company Number: US-PFIZER INC-2010160347

PATIENT
  Sex: Female
  Weight: 63.5 kg

DRUGS (4)
  1. PRISTIQ [Suspect]
     Indication: DEPRESSION
     Dosage: 50 MG DAILY
     Route: 048
     Dates: start: 20100101
  2. METHADONE [Concomitant]
     Indication: PAIN
     Dosage: 40 MG DAILY
  3. AMBIEN [Concomitant]
     Indication: SLEEP DISORDER
     Dosage: 10 MG DAILY
     Route: 048
  4. PRISTIQ [Suspect]
     Dosage: 100 MG DAILY
     Route: 048
     Dates: start: 20101101

REACTIONS (4)
  - RESPIRATORY TRACT INFECTION [None]
  - HYPERSOMNIA [None]
  - COLD SWEAT [None]
  - HYPERHIDROSIS [None]
